FAERS Safety Report 8598075-1 (Version None)
Quarter: 2012Q3

REPORT INFORMATION
  Report Type: 
  Country: None (occurrence: None)
  Receive Date: 20120816
  Receipt Date: 20120806
  Transmission Date: 20120928
  Serious: Yes (Disabling)
  Sender: FDA-Public Use
  Company Number: AU-ACTELION-A-CH2012-67201

PATIENT
  Age: 77 Year
  Sex: Female
  Weight: 70 kg

DRUGS (10)
  1. TRACLEER [Suspect]
     Indication: PULMONARY ARTERIAL HYPERTENSION
     Dosage: 125 MG, BID
     Route: 048
  2. ASPIRIN [Concomitant]
  3. RABEPRAZOLE SODIUM [Concomitant]
  4. PANAMAX [Concomitant]
  5. TRACLEER [Suspect]
     Dosage: 62.5 MG, BID
     Route: 048
     Dates: start: 20120301
  6. ZOCOR [Concomitant]
  7. ADALAT [Concomitant]
  8. TRACLEER [Suspect]
     Dosage: 62.5 MG, BID
     Route: 048
     Dates: end: 20120711
  9. TEMAZEPAM [Concomitant]
  10. PREDNISOLONE [Concomitant]

REACTIONS (4)
  - POLYARTHRITIS [None]
  - MYALGIA [None]
  - ARTHRALGIA [None]
  - JOINT RANGE OF MOTION DECREASED [None]
